FAERS Safety Report 12693947 (Version 4)
Quarter: 2019Q3

REPORT INFORMATION
  Report Type: Report from Study
  Country: FR (occurrence: FR)
  Receive Date: 20160829
  Receipt Date: 20190814
  Transmission Date: 20191004
  Serious: Yes (Death, Hospitalization, Other)
  Sender: FDA-Public Use
  Company Number: PHHY2016FR116091

PATIENT
  Age: 75 Year
  Sex: Female

DRUGS (7)
  1. EXEMESTANE. [Concomitant]
     Active Substance: EXEMESTANE
     Indication: BREAST CANCER
     Dosage: 25 MG, UNK
     Route: 065
     Dates: start: 20160123, end: 20160523
  2. AMLOR [Concomitant]
     Active Substance: AMLODIPINE BESYLATE
     Indication: PRODUCT USED FOR UNKNOWN INDICATION
     Dosage: 5 MG, BID (1 DF IN THE MORNING AND IN THE EVENING), START BEFORE 15 APR 2013 DURING BREAST CANCER
     Route: 065
  3. AFINITOR [Suspect]
     Active Substance: EVEROLIMUS
     Indication: BREAST CANCER METASTATIC
     Dosage: 10 MG, UNK
     Route: 048
     Dates: start: 20160123, end: 20160523
  4. OMEPRAZOLE. [Concomitant]
     Active Substance: OMEPRAZOLE
     Indication: PRODUCT USED FOR UNKNOWN INDICATION
     Dosage: 20 MG, (1 DF) QD, START BEFORE 15 APR 2013 DURING TREATMENT OF BREAST CANCER
     Route: 065
  5. JANUMET [Concomitant]
     Active Substance: METFORMIN HYDROCHLORIDE\SITAGLIPTIN PHOSPHATE
     Indication: PRODUCT USED FOR UNKNOWN INDICATION
     Dosage: 1 DF, BID (1 DF IN THE MORNING AND IN THE EVENING). START BEFORE 15 APR 2013 DURING TREATMENT
     Route: 065
  6. KARDEGIC [Concomitant]
     Active Substance: ASPIRIN DL-LYSINE
     Indication: PRODUCT USED FOR UNKNOWN INDICATION
     Dosage: 75 MG, (1 DF) QD, START BEFORE 15 APR 2013 DURING TREATMENT OF BREAST CANCER
     Route: 065
  7. ZOFENILDUO [Concomitant]
     Active Substance: HYDROCHLOROTHIAZIDE\ZOFENOPRIL
     Indication: PRODUCT USED FOR UNKNOWN INDICATION
     Dosage: 1 DF, QD, START BEFORE 15 APR 2013 DURING TREATTMENT OF BREAST CANCER
     Route: 065

REACTIONS (7)
  - Malignant neoplasm progression [Fatal]
  - Pleural effusion [Fatal]
  - Breast cancer metastatic [Fatal]
  - Metastases to pleura [Fatal]
  - Dyspnoea [Fatal]
  - Respiratory distress [Fatal]
  - Disorientation [Fatal]

NARRATIVE: CASE EVENT DATE: 20160413
